FAERS Safety Report 21607068 (Version 1)
Quarter: 2022Q4

REPORT INFORMATION
  Report Type: Spontaneous
  Country: CN (occurrence: CN)
  Receive Date: 20221117
  Receipt Date: 20221117
  Transmission Date: 20230113
  Serious: Yes (Hospitalization, Other)
  Sender: FDA-Public Use
  Company Number: CN-NATCOUSA-2022-NATCOUSA-000092

PATIENT
  Age: 55 Year
  Sex: Female

DRUGS (1)
  1. IMATINIB MESYLATE [Suspect]
     Active Substance: IMATINIB MESYLATE
     Indication: Chronic myeloid leukaemia
     Dates: start: 201908, end: 2020

REACTIONS (9)
  - Angiocentric lymphoma [Recovering/Resolving]
  - Lymphoma [Recovering/Resolving]
  - Pneumonia [Recovering/Resolving]
  - Septic shock [Recovering/Resolving]
  - Stenotrophomonas infection [Recovering/Resolving]
  - Aspergillus infection [Recovering/Resolving]
  - Epstein-Barr virus infection [Recovering/Resolving]
  - Actinomycotic pulmonary infection [Recovering/Resolving]
  - Enterobacter infection [Recovering/Resolving]

NARRATIVE: CASE EVENT DATE: 20200101
